FAERS Safety Report 17311248 (Version 1)
Quarter: 2020Q1

REPORT INFORMATION
  Report Type: Spontaneous
  Country: US (occurrence: US)
  Receive Date: 20200123
  Receipt Date: 20200123
  Transmission Date: 20200409
  Serious: No
  Sender: FDA-Public Use
  Company Number: US-ROCHE-2394161

PATIENT
  Sex: Female

DRUGS (5)
  1. LUMIGAN [Concomitant]
     Active Substance: BIMATOPROST
  2. MUPIROCIN. [Concomitant]
     Active Substance: MUPIROCIN
  3. TIMOLOL MALEATE. [Concomitant]
     Active Substance: TIMOLOL MALEATE
  4. RITUXAN [Suspect]
     Active Substance: RITUXIMAB
     Indication: MANTLE CELL LYMPHOMA
     Route: 042
  5. DEXAMETHASONE. [Concomitant]
     Active Substance: DEXAMETHASONE

REACTIONS (3)
  - Acne [Not Recovered/Not Resolved]
  - Fatigue [Unknown]
  - Abdominal discomfort [Unknown]
